FAERS Safety Report 12635361 (Version 1)
Quarter: 2016Q3

REPORT INFORMATION
  Report Type: Spontaneous
  Country: US (occurrence: US)
  Receive Date: 20160808
  Receipt Date: 20160808
  Transmission Date: 20161109
  Serious: No
  Sender: FDA-Public Use
  Company Number: US-SHIRE-US201608916

PATIENT
  Sex: Male
  Weight: 83.9 kg

DRUGS (14)
  1. LISINOPRIL. [Concomitant]
     Active Substance: LISINOPRIL
     Indication: HYPERTENSION
     Dosage: 10 MG, 1X/DAY:QD
     Route: 048
     Dates: start: 2013, end: 2014
  2. IBUPROFEN. [Concomitant]
     Active Substance: IBUPROFEN
     Indication: PAIN
     Dosage: 200 MG, 4X/DAY:QID (ALTERNATE WITH ALEVE)
     Route: 048
     Dates: start: 2013
  3. LORTAB [Concomitant]
     Active Substance: ACETAMINOPHEN\HYDROCODONE BITARTRATE
     Indication: PAIN
     Dosage: 10 MG, AS REQ^D
     Route: 048
     Dates: start: 2013
  4. PROTONIX                           /00661201/ [Concomitant]
     Active Substance: OMEPRAZOLE
     Indication: DYSPEPSIA
     Dosage: 40 MG, 1X/DAY:QD
     Route: 048
     Dates: start: 201302
  5. WELLBUTRIN [Concomitant]
     Active Substance: BUPROPION HYDROCHLORIDE
     Indication: ANXIETY
  6. VITAMIN D                          /00107901/ [Concomitant]
     Active Substance: ERGOCALCIFEROL
     Indication: NUTRITIONAL SUPPLEMENTATION
     Dosage: 5000 IU, 1X/DAY:QD
     Route: 048
     Dates: start: 2013
  7. ALEVE [Concomitant]
     Active Substance: NAPROXEN SODIUM
     Indication: PAIN
     Dosage: 220 MG, 4X/DAY:QID (ALTERNATE WITH IBUPROFEN)
     Route: 048
  8. DEXTROAMPHET SACCHARAT, AMPHET ASPARTATE, DEXTROAMPHET SULFATE AND AMPHET SULFAT [Suspect]
     Active Substance: AMPHETAMINE ASPARTATE\AMPHETAMINE SULFATE\DEXTROAMPHETAMINE SACCHARATE\DEXTROAMPHETAMINE SULFATE
     Indication: FATIGUE
     Dosage: 30 MG, 1X/DAY:QD
     Route: 048
     Dates: start: 2014
  9. DEXTROAMPHET SACCHARAT, AMPHET ASPARTATE, DEXTROAMPHET SULFATE AND AMPHET SULFAT [Suspect]
     Active Substance: AMPHETAMINE ASPARTATE\AMPHETAMINE SULFATE\DEXTROAMPHETAMINE SACCHARATE\DEXTROAMPHETAMINE SULFATE
     Indication: PROGRESSIVE RELAPSING MULTIPLE SCLEROSIS
     Dosage: 20 MG, AS REQ^D (IN THE AFTERNOON IN ADDITION TO 30 MG DOSE)
     Route: 048
     Dates: end: 201606
  10. TYSABRI [Suspect]
     Active Substance: NATALIZUMAB
     Indication: PROGRESSIVE RELAPSING MULTIPLE SCLEROSIS
     Dosage: UNK, OTHER (MONTLY INFUSION)
     Route: 042
     Dates: end: 201606
  11. BACLOFEN. [Concomitant]
     Active Substance: BACLOFEN
     Indication: MUSCLE SPASMS
     Dosage: 10 MG, 3X/DAY:TID
     Route: 048
     Dates: start: 2013
  12. WELLBUTRIN [Concomitant]
     Active Substance: BUPROPION HYDROCHLORIDE
     Indication: AGITATION
     Dosage: 150 - 300 MG, AS REQ^D
     Route: 048
     Dates: start: 2013
  13. LISINOPRIL. [Concomitant]
     Active Substance: LISINOPRIL
     Dosage: 20 MG, 1X/DAY:QD
     Route: 048
     Dates: start: 2014
  14. GABAPENTIN. [Concomitant]
     Active Substance: GABAPENTIN
     Indication: MUSCLE SPASTICITY
     Dosage: 300 MG, OTHER (2 OR 3 TIMES DAILY)
     Route: 048
     Dates: start: 201308

REACTIONS (8)
  - Fatigue [Unknown]
  - Viral load increased [Unknown]
  - Hypertension [Unknown]
  - Somnolence [Unknown]
  - Product use issue [Not Recovered/Not Resolved]
  - Sluggishness [Unknown]
  - Inappropriate schedule of drug administration [Recovered/Resolved]
  - Prescribed overdose [Not Recovered/Not Resolved]

NARRATIVE: CASE EVENT DATE: 2014
